FAERS Safety Report 7219188-2 (Version None)
Quarter: 2011Q1

REPORT INFORMATION
  Report Type: 
  Country: None (occurrence: None)
  Receive Date: 20110111
  Receipt Date: 20110106
  Transmission Date: 20110831
  Serious: Yes (Death)
  Sender: FDA-Public Use
  Company Number: FR-ASTELLAS-2011US000097

PATIENT

DRUGS (2)
  1. AMBISOME [Suspect]
     Indication: ZYGOMYCOSIS
     Dosage: 10 MG/KG, UNKNOWN/D
     Route: 058
     Dates: start: 20100908, end: 20101006
  2. AMBISOME [Suspect]
     Dosage: 5 MG/KG, UNKNOWN/D
     Route: 058
     Dates: start: 20101006

REACTIONS (1)
  - NEUROLOGICAL DECOMPENSATION [None]
